FAERS Safety Report 9644636 (Version 2)
Quarter: 2014Q1

REPORT INFORMATION
  Report Type: Spontaneous
  Country: US (occurrence: US)
  Receive Date: 20131025
  Receipt Date: 20140124
  Transmission Date: 20141002
  Serious: Yes (Hospitalization)
  Sender: FDA-Public Use
  Company Number: US-ASTRAZENECA-2013SE77072

PATIENT
  Age: 44 Year
  Sex: Female
  Weight: 141.5 kg

DRUGS (7)
  1. SYMBICORT [Suspect]
     Indication: ASTHMA
     Dosage: UNKNOWN
     Route: 055
     Dates: start: 2009
  2. SYMBICORT [Suspect]
     Indication: ASTHMA
     Dosage: 360 TID
     Route: 055
  3. SYMBICORT [Suspect]
     Indication: ASTHMA
     Dosage: 160/ 4.5, 2 PUFFS THREE TIMES A DAY
     Route: 055
  4. BLOOD PRESSURE MEDICATION [Concomitant]
     Indication: BLOOD PRESSURE ABNORMAL
  5. DIABETES PILL [Concomitant]
     Indication: DIABETES MELLITUS
  6. INSULIN [Concomitant]
     Indication: DIABETES MELLITUS
  7. SINGULAIR [Concomitant]

REACTIONS (3)
  - Diabetes mellitus [Unknown]
  - Intentional drug misuse [Unknown]
  - Drug dose omission [Unknown]
